FAERS Safety Report 8155677-4 (Version None)
Quarter: 2012Q1

REPORT INFORMATION
  Report Type: 
  Country: None (occurrence: None)
  Receive Date: 20120222
  Receipt Date: 20120216
  Transmission Date: 20120608
  Serious: No
  Sender: FDA-Public Use
  Company Number: US-PFIZER INC-2012023544

PATIENT
  Sex: Female
  Weight: 125.17 kg

DRUGS (8)
  1. FLEXERIL [Concomitant]
     Dosage: UNK
  2. POTASSIUM CHLORIDE [Concomitant]
     Dosage: UNK
  3. ULTRAM [Concomitant]
     Dosage: UNK
  4. TRAZODONE [Concomitant]
     Dosage: UNK
  5. LYRICA [Suspect]
     Indication: NERVE COMPRESSION
     Dosage: 75 MG, 2X/DAY
     Route: 048
     Dates: start: 20100101, end: 20110801
  6. ZOCOR [Concomitant]
     Indication: BLOOD CHOLESTEROL INCREASED
     Dosage: UNK
  7. LASIX [Concomitant]
     Dosage: UNK
  8. ZESTORETIC [Concomitant]
     Indication: HYPERTENSION
     Dosage: UNK

REACTIONS (2)
  - MEMORY IMPAIRMENT [None]
  - PAIN [None]
